FAERS Safety Report 6154290-8 (Version None)
Quarter: 2009Q2

REPORT INFORMATION
  Report Type: 
  Country: None (occurrence: None)
  Receive Date: 20090410
  Receipt Date: 20090331
  Transmission Date: 20091009
  Serious: No
  Sender: FDA-Public Use
  Company Number: 2009-194256-NL

PATIENT
  Age: 60 Year
  Sex: Male

DRUGS (7)
  1. DEXAMETHASONE 4MG TAB [Suspect]
     Indication: MONOCLONAL IMMUNOGLOBULIN PRESENT
  2. DEXAMETHASONE 4MG TAB [Suspect]
     Indication: PANCYTOPENIA
  3. BORTEZOMIN [Suspect]
     Indication: MONOCLONAL IMMUNOGLOBULIN PRESENT
  4. BORTEZOMIN [Suspect]
     Indication: PANCYTOPENIA
  5. MELPHALAN [Concomitant]
  6. PREDNISOLONE [Concomitant]
  7. THALIDOMIDE [Concomitant]

REACTIONS (6)
  - DERMATITIS EXFOLIATIVE [None]
  - DIARRHOEA [None]
  - ERYTHEMA [None]
  - FACE OEDEMA [None]
  - HERPES ZOSTER [None]
  - PYREXIA [None]
